FAERS Safety Report 6009966-X (Version None)
Quarter: 2008Q4

REPORT INFORMATION
  Report Type: 
  Country: None (occurrence: None)
  Receive Date: 20081218
  Receipt Date: 20081212
  Transmission Date: 20090506
  Serious: Yes (Other)
  Sender: FDA-Public Use
  Company Number: DE-JNJFOC-20081203858

PATIENT
  Age: 53 Year
  Sex: Female

DRUGS (2)
  1. RISPERDAL CONSTA [Suspect]
     Indication: DRUG USE FOR UNKNOWN INDICATION
     Route: 030
  2. PULMICORT-100 [Concomitant]
     Indication: BRONCHITIS CHRONIC
     Route: 055

REACTIONS (1)
  - PLEURAL EFFUSION [None]
